FAERS Safety Report 7180895-1 (Version None)
Quarter: 2010Q4

REPORT INFORMATION
  Report Type: 
  Country: None (occurrence: None)
  Receive Date: 20101221
  Receipt Date: 20100414
  Transmission Date: 20110411
  Serious: No
  Sender: FDA-Public Use
  Company Number: US-AMGEN-KDL406259

PATIENT

DRUGS (7)
  1. ENBREL [Suspect]
     Indication: PRODUCT USED FOR UNKNOWN INDICATION
     Dosage: 50 MG, QWK
     Route: 058
  2. LEFLUNOMIDE [Concomitant]
  3. IBUPROFEN [Concomitant]
  4. SULFASALAZINE [Concomitant]
  5. CENTRUM [Concomitant]
     Dosage: UNK UNK, UNK
  6. FOLIC ACID [Concomitant]
     Dosage: 1 MG, UNK
  7. ASCORBIC ACID [Concomitant]
     Dosage: UNK UNK, QWK
     Route: 048

REACTIONS (3)
  - INJECTION SITE ERYTHEMA [None]
  - INJECTION SITE PAIN [None]
  - INJECTION SITE PRURITUS [None]
